FAERS Safety Report 10230153 (Version 1)
Quarter: 2014Q2

REPORT INFORMATION
  Report Type: Spontaneous
  Country: CH (occurrence: None)
  Receive Date: 20140609
  Receipt Date: 20140609
  Transmission Date: 20141212
  Serious: Yes (Hospitalization)
  Sender: FDA-Public Use
  Company Number: VAL_03123_2014

PATIENT
  Age: 67 Year
  Sex: Male

DRUGS (12)
  1. METOPROLOL (METOPROLOL - METOPROLOL TARTRATE) [Suspect]
     Indication: HYPERTENSION
     Route: 048
  2. SINTROM [Suspect]
     Indication: CARDIAC VALVE DISEASE
     Dosage: DF
     Route: 048
     Dates: start: 20140305, end: 20140411
  3. LISINOPRIL (LISINOPRIL) [Suspect]
     Indication: HYPERTENSION
     Route: 048
  4. TORASEMIDE (TORASEMIDE) [Suspect]
     Indication: HYPERTENSION
     Route: 048
  5. ASPIRIN CARDIO [Suspect]
     Indication: DIABETIC VASCULAR DISORDER
     Route: 048
  6. PANTOPRAZOLE [Concomitant]
  7. PANADOL [Concomitant]
  8. NOVOMIX [Concomitant]
  9. CALCIMAGON D3 [Concomitant]
  10. BENERVA [Concomitant]
  11. IMPORTAL [Concomitant]
  12. ZOLPIDEM [Concomitant]

REACTIONS (9)
  - Cardiac failure [None]
  - Prothrombin time prolonged [None]
  - Blood albumin decreased [None]
  - International normalised ratio increased [None]
  - Epistaxis [None]
  - Haemorrhagic anaemia [None]
  - Hypotension [None]
  - Therapeutic response increased [None]
  - Tachycardia [None]
